FAERS Safety Report 6310946-5 (Version None)
Quarter: 2009Q3

REPORT INFORMATION
  Report Type: 
  Country: None (occurrence: None)
  Receive Date: 20090817
  Receipt Date: 20090806
  Transmission Date: 20100115
  Serious: Yes (Hospitalization)
  Sender: FDA-Public Use
  Company Number: US-BIOGENIDEC-2008BI010368

PATIENT
  Sex: Male
  Weight: 73 kg

DRUGS (2)
  1. TYSABRI [Suspect]
     Indication: MULTIPLE SCLEROSIS
     Route: 042
     Dates: start: 20070719, end: 20080204
  2. TYSABRI [Suspect]
     Route: 042
     Dates: start: 20080701

REACTIONS (14)
  - BIPOLAR DISORDER [None]
  - DYSPHAGIA [None]
  - FATIGUE [None]
  - MALAISE [None]
  - MENTAL DISORDER [None]
  - MULTIPLE SCLEROSIS [None]
  - MULTIPLE SCLEROSIS RELAPSE [None]
  - NERVOUSNESS [None]
  - PARANOIA [None]
  - PSYCHIATRIC EVALUATION [None]
  - SCHIZOPHRENIA [None]
  - VISION BLURRED [None]
  - VISUAL ACUITY REDUCED [None]
  - VISUAL IMPAIRMENT [None]
